FAERS Safety Report 8509013-1 (Version None)
Quarter: 2012Q3

REPORT INFORMATION
  Report Type: 
  Country: None (occurrence: None)
  Receive Date: 20120713
  Receipt Date: 20120705
  Transmission Date: 20120928
  Serious: Yes (Hospitalization)
  Sender: FDA-Public Use
  Company Number: AU-ABBOTT-12P-008-0943009-02

PATIENT
  Sex: Female

DRUGS (14)
  1. GASTROSTOP [Concomitant]
     Indication: ANTIDIARRHOEAL SUPPORTIVE CARE
     Dates: start: 20100201
  2. CODEINE SULFATE [Concomitant]
     Indication: ANALGESIC THERAPY
     Dates: start: 20100501
  3. OMEPRAZOLE [Concomitant]
     Indication: GASTROOESOPHAGEAL REFLUX DISEASE
  4. MAGMIN [Concomitant]
     Indication: MAGNESIUM DEFICIENCY
     Dates: start: 20090101
  5. VITAMIN D [Concomitant]
     Indication: MEDICAL DIET
  6. LOMOTIL [Concomitant]
     Indication: ANTIDIARRHOEAL SUPPORTIVE CARE
     Dates: start: 20100531
  7. CALCITAROL [Concomitant]
     Indication: HYPOCALCAEMIA
     Dates: start: 20120301
  8. MAXOLON [Concomitant]
     Indication: NAUSEA
     Dates: start: 20110901
  9. ZINC SULFATE [Concomitant]
     Indication: MEDICAL DIET
     Dates: start: 20090101
  10. CODEINE SULFATE [Concomitant]
     Indication: ANTIDIARRHOEAL SUPPORTIVE CARE
  11. HUMIRA [Suspect]
     Dates: end: 20100702
  12. VITAMIN B COMPLEX CAP [Concomitant]
     Indication: MEDICAL DIET
  13. HUMIRA [Suspect]
     Indication: CROHN'S DISEASE
     Dosage: BASELINE
     Route: 058
     Dates: start: 20090116, end: 20090116
  14. HUMIRA [Suspect]
     Dosage: WEEK 2

REACTIONS (1)
  - RENAL FAILURE ACUTE [None]
